FAERS Safety Report 13170233 (Version 1)
Quarter: 2017Q1

REPORT INFORMATION
  Report Type: Spontaneous
  Country: US (occurrence: US)
  Receive Date: 20170131
  Receipt Date: 20170131
  Transmission Date: 20170428
  Serious: No
  Sender: FDA-Public Use
  Company Number: US-ASTRAZENECA-2017SE10817

PATIENT
  Sex: Male

DRUGS (3)
  1. BYDUREON [Suspect]
     Active Substance: EXENATIDE
     Indication: TYPE 1 DIABETES MELLITUS
     Route: 058
  2. DPP-4 MEDICATION [Concomitant]
  3. GLP-1 MEDICATIONS [Concomitant]

REACTIONS (3)
  - Pancreatitis [Unknown]
  - Product use issue [Unknown]
  - Off label use [Unknown]
